FAERS Safety Report 25658230 (Version 1)
Quarter: 2025Q3

REPORT INFORMATION
  Report Type: Spontaneous
  Country: US (occurrence: US)
  Receive Date: 20250808
  Receipt Date: 20250808
  Transmission Date: 20251020
  Serious: No
  Sender: MERCK SHARP & DOHME LLC
  Company Number: US-009507513-2316286

PATIENT
  Age: 4 Year
  Sex: Female

DRUGS (3)
  1. TEMOZOLOMIDE [Suspect]
     Active Substance: TEMOZOLOMIDE
     Indication: Pleuropulmonary blastoma
     Route: 048
  2. VINCRISTINE [Concomitant]
     Active Substance: VINCRISTINE
     Indication: Pleuropulmonary blastoma
  3. oral irinotecan [Concomitant]
     Indication: Pleuropulmonary blastoma
     Route: 048

REACTIONS (1)
  - Product use in unapproved indication [Unknown]
